FAERS Safety Report 18310103 (Version 3)
Quarter: 2020Q4

REPORT INFORMATION
  Report Type: Report from Study
  Country: US (occurrence: US)
  Receive Date: 20200925
  Receipt Date: 20201009
  Transmission Date: 20210113
  Serious: Yes (Other)
  Sender: FDA-Public Use
  Company Number: US-B.I. PHARMACEUTICALS,INC./RIDGEFIELD-2020-BI-049052

PATIENT
  Age: 84 Year
  Sex: Female

DRUGS (1)
  1. OFEV [Suspect]
     Active Substance: NINTEDANIB
     Indication: IDIOPATHIC PULMONARY FIBROSIS
     Dosage: 100MG BID
     Route: 048
     Dates: start: 20200909

REACTIONS (6)
  - Blood pressure fluctuation [Not Recovered/Not Resolved]
  - Constipation [Unknown]
  - Blindness [Unknown]
  - Dizziness [Unknown]
  - Nausea [Unknown]
  - Illness [Unknown]

NARRATIVE: CASE EVENT DATE: 202009
